FAERS Safety Report 18206560 (Version 1)
Quarter: 2020Q3

REPORT INFORMATION
  Report Type: Spontaneous
  Country: US (occurrence: US)
  Receive Date: 20200827
  Receipt Date: 20200827
  Transmission Date: 20201103
  Serious: Yes (Death)
  Sender: FDA-Public Use
  Company Number: None

PATIENT
  Age: 63 Year
  Sex: Male

DRUGS (6)
  1. REMDESIVIR. [Suspect]
     Active Substance: REMDESIVIR
  2. CEFEPIME [Concomitant]
     Active Substance: CEFEPIME HYDROCHLORIDE
  3. TOCILIZUMAB. [Concomitant]
     Active Substance: TOCILIZUMAB
  4. LOVENOX [Concomitant]
     Active Substance: ENOXAPARIN SODIUM
  5. DEXAMETHAXONE [Concomitant]
  6. LINEZOLID. [Concomitant]
     Active Substance: LINEZOLID

REACTIONS (15)
  - Haemodialysis [None]
  - Cardiac arrest [None]
  - Brain oedema [None]
  - Bilevel positive airway pressure [None]
  - Haemoglobin decreased [None]
  - Pneumonia staphylococcal [None]
  - Supraventricular tachycardia [None]
  - Family stress [None]
  - Pulmonary haemosiderosis [None]
  - Renal failure [None]
  - Pneumothorax [None]
  - Brain herniation [None]
  - Suspected COVID-19 [None]
  - Procalcitonin increased [None]
  - Tobacco user [None]

NARRATIVE: CASE EVENT DATE: 20200827
